FAERS Safety Report 8245899-6 (Version None)
Quarter: 2012Q1

REPORT INFORMATION
  Report Type: 
  Country: None (occurrence: None)
  Receive Date: 20120328
  Receipt Date: 20120322
  Transmission Date: 20120608
  Serious: Yes (Death)
  Sender: FDA-Public Use
  Company Number: 2012TP000056

PATIENT
  Age: 50 Year
  Sex: Male

DRUGS (1)
  1. LIDODERM [Suspect]
     Indication: OSTEOARTHRITIS
     Dosage: 1 PATCH, 1 X, TOP
     Route: 061

REACTIONS (1)
  - HEPATIC FAILURE [None]
